FAERS Safety Report 24314485 (Version 1)
Quarter: 2024Q3

REPORT INFORMATION
  Report Type: Report from Study
  Country: IT (occurrence: IT)
  Receive Date: 20240913
  Receipt Date: 20240913
  Transmission Date: 20241017
  Serious: Yes (Other)
  Sender: ACCORD
  Company Number: None

PATIENT
  Age: 53 Year
  Sex: Female
  Weight: 76 kg

DRUGS (8)
  1. PACLITAXEL [Suspect]
     Active Substance: PACLITAXEL
     Indication: Ovarian neoplasm
     Dosage: 300 MG/500 ML
     Dates: start: 20240808, end: 20240808
  2. CARBOPLATIN [Concomitant]
     Active Substance: CARBOPLATIN
     Indication: Ovarian low malignant potential tumour
     Dosage: 500 MG/500 ML
     Dates: start: 20240808, end: 20240808
  3. ENOXAPARIN SODIUM [Concomitant]
     Active Substance: ENOXAPARIN SODIUM
     Indication: Circulating anticoagulant
     Dosage: 4000 IU 0.4 ML 1 VIAL FOR 40 DAYS
  4. TRIMETON [Concomitant]
     Active Substance: CHLORPHENIRAMINE MALEATE
     Indication: Allergy prophylaxis
     Dosage: 10 MG/100  ML
     Dates: start: 20240808, end: 20240808
  5. LEVOTHYROXINE SODIUM [Concomitant]
     Active Substance: LEVOTHYROXINE SODIUM
     Indication: Hypothyroidism
     Dosage: 50 MG
  6. DEXAMETHASONE [Concomitant]
     Active Substance: DEXAMETHASONE
     Indication: Allergy prophylaxis
     Dosage: 20 MG/100 ML
     Dates: start: 20240808, end: 20240808
  7. PANTOPRAZOLE SODIUM [Concomitant]
     Active Substance: PANTOPRAZOLE SODIUM
     Indication: Gastritis prophylaxis
     Dosage: 40 MG/100 ML
  8. ATORVASTATIN [Concomitant]
     Active Substance: ATORVASTATIN
     Indication: Dyslipidaemia

REACTIONS (3)
  - Erythema [Recovered/Resolved]
  - Hypoxia [Recovered/Resolved]
  - Chest discomfort [Recovered/Resolved]

NARRATIVE: CASE EVENT DATE: 20240808
